FAERS Safety Report 5515381-5 (Version None)
Quarter: 2007Q4

REPORT INFORMATION
  Report Type: 
  Country: None (occurrence: None)
  Receive Date: 20071109
  Receipt Date: 20071106
  Transmission Date: 20080405
  Serious: Yes (Life-Threatening)
  Sender: FDA-Public Use
  Company Number: 2007-167102-NL

PATIENT
  Age: 39 Year
  Sex: Female

DRUGS (1)
  1. ETONOGESTREL (BATCH # 652032) [Suspect]
     Indication: MENORRHAGIA
     Dosage: DF SUBCUTANEOUS
     Route: 058
     Dates: start: 20070626

REACTIONS (2)
  - ANAPHYLACTIC REACTION [None]
  - URTICARIA [None]
